FAERS Safety Report 5863587-8 (Version None)
Quarter: 2008Q3

REPORT INFORMATION
  Report Type: 
  Country: None (occurrence: None)
  Receive Date: 20080828
  Receipt Date: 20080814
  Transmission Date: 20090109
  Serious: Yes (Disabling, Other)
  Sender: FDA-Public Use
  Company Number: DE-BAYER-200818499GPV

PATIENT
  Age: 11 Year
  Sex: Male
  Weight: 31 kg

DRUGS (6)
  1. TRASYLOL [Suspect]
     Indication: AORTIC STENOSIS
     Dosage: TOTAL DAILY DOSE: 1000000 KIU
     Route: 065
     Dates: start: 20070613, end: 20070613
  2. HEPARIN [Concomitant]
     Indication: AORTIC STENOSIS
     Route: 065
     Dates: start: 20070613
  3. PREDNISOLONE [Concomitant]
     Indication: DRUG USE FOR UNKNOWN INDICATION
     Route: 065
     Dates: start: 20070613
  4. CEFAZOLIN [Concomitant]
     Indication: DRUG USE FOR UNKNOWN INDICATION
     Route: 065
     Dates: start: 20070613
  5. RANITIDINE HCL [Concomitant]
     Indication: DRUG USE FOR UNKNOWN INDICATION
     Route: 065
     Dates: start: 20070613
  6. PHENYLEPHRINE [Concomitant]
     Indication: DRUG USE FOR UNKNOWN INDICATION
     Route: 065
     Dates: start: 20070613

REACTIONS (7)
  - APHASIA [None]
  - DEPRESSED LEVEL OF CONSCIOUSNESS [None]
  - FAECAL INCONTINENCE [None]
  - HYPERTENSION [None]
  - HYPOXIC ENCEPHALOPATHY [None]
  - PARESIS [None]
  - URINARY INCONTINENCE [None]
